FAERS Safety Report 23057280 (Version 2)
Quarter: 2023Q4

REPORT INFORMATION
  Report Type: Spontaneous
  Country: US (occurrence: US)
  Receive Date: 20231012
  Receipt Date: 20231023
  Transmission Date: 20240110
  Serious: Yes (Hospitalization)
  Sender: FDA-Public Use
  Company Number: US-TEVA-2023-US-2933122

PATIENT
  Age: 35 Year
  Sex: Male

DRUGS (5)
  1. HYDROXYZINE [Suspect]
     Active Substance: HYDROXYZINE HYDROCHLORIDE
     Indication: Anxiety
     Dosage: 200 MILLIGRAM DAILY; 50MG EVERY 6 HOURS  , RECEIVED ONE DOSE FOR ANXIETY ON DAY 3 DURING HIS ENTIRE
     Route: 048
  2. HYDROXYZINE [Suspect]
     Active Substance: HYDROXYZINE HYDROCHLORIDE
     Indication: Insomnia
     Dosage: RECEIVED NIGHTLY FOR INSOMNIA INCLUDING THE NIGHT BEFORE ADMISSION
     Route: 048
  3. RISPERIDONE [Suspect]
     Active Substance: RISPERIDONE
     Indication: Psychotic disorder
     Dosage: 2 MILLIGRAM DAILY; RECEIVED NIGHTLY AT BEDTIME
     Route: 048
  4. RISPERIDONE [Suspect]
     Active Substance: RISPERIDONE
     Dosage: 4 MILLIGRAM DAILY; TITRATED TO 4 MG NIGHTLY BEFORE HOSPITAL DISCHARGE
     Route: 048
  5. RISPERIDONE [Suspect]
     Active Substance: RISPERIDONE
     Dosage: 3 MG
     Route: 048

REACTIONS (1)
  - Priapism [Recovered/Resolved]
